FAERS Safety Report 24363818 (Version 1)
Quarter: 2024Q3

REPORT INFORMATION
  Report Type: Spontaneous
  Country: US (occurrence: US)
  Receive Date: 20240925
  Receipt Date: 20240925
  Transmission Date: 20241017
  Serious: Yes (Other)
  Sender: BAYER
  Company Number: US-BAYER-2024A135537

PATIENT
  Age: 67 Year
  Sex: Female

DRUGS (2)
  1. MIRALAX [Suspect]
     Active Substance: POLYETHYLENE GLYCOL 3350
     Indication: Gastrointestinal disorder
     Dosage: 238GR MIXED IN 60OZ OF GATORADE MIXTURE DRINKING 8OZ EVERY THIRTY MINUTES
     Route: 048
  2. MIRALAX [Suspect]
     Active Substance: POLYETHYLENE GLYCOL 3350
     Indication: Colonoscopy

REACTIONS (3)
  - Rectal haemorrhage [Recovering/Resolving]
  - Off label use [Recovering/Resolving]
  - Anorectal discomfort [Recovering/Resolving]

NARRATIVE: CASE EVENT DATE: 20240922
